FAERS Safety Report 7824306-9 (Version None)
Quarter: 2011Q4

REPORT INFORMATION
  Report Type: 
  Country: None (occurrence: None)
  Receive Date: 20111019
  Receipt Date: 20111012
  Transmission Date: 20120403
  Serious: Yes (Death)
  Sender: FDA-Public Use
  Company Number: US-CELGENEUS-163-21880-11022067

PATIENT
  Sex: Male

DRUGS (5)
  1. REVLIMID [Suspect]
     Indication: MULTIPLE MYELOMA
     Dosage: 15 MILLIGRAM
     Route: 048
     Dates: start: 20110214, end: 20110614
  2. DEXAMETHASONE [Concomitant]
     Route: 065
     Dates: end: 20110614
  3. VALTREX [Concomitant]
     Route: 065
     Dates: end: 20110614
  4. VORICONAZOLE [Concomitant]
     Route: 065
     Dates: end: 20110614
  5. PROTONIX [Concomitant]
     Route: 065
     Dates: end: 20110614

REACTIONS (4)
  - SEPSIS [None]
  - HEARING IMPAIRED [None]
  - CARDIOMYOPATHY [None]
  - RESPIRATORY TRACT INFECTION [None]
